FAERS Safety Report 13791782 (Version 1)
Quarter: 2017Q3

REPORT INFORMATION
  Report Type: Spontaneous
  Country: US (occurrence: US)
  Receive Date: 20170725
  Receipt Date: 20170725
  Transmission Date: 20171127
  Serious: No
  Sender: FDA-Public Use
  Company Number: None

PATIENT
  Age: 28 Year
  Sex: Female
  Weight: 72 kg

DRUGS (4)
  1. MULTIVITAMIN [Concomitant]
     Active Substance: VITAMINS
  2. SPIRANOLACTONE [Concomitant]
     Active Substance: SPIRONOLACTONE
  3. B-12 INJECTIONS [Concomitant]
  4. CONTRAVE [Suspect]
     Active Substance: BUPROPION HYDROCHLORIDE\NALTREXONE HYDROCHLORIDE
     Indication: WEIGHT DECREASED
     Dosage: ?          QUANTITY:120 TABLET(S);OTHER FREQUENCY:DOSAGE INCREASES;?
     Route: 048
     Dates: start: 20170708, end: 20170713

REACTIONS (7)
  - Eye swelling [None]
  - Dizziness [None]
  - Abdominal distension [None]
  - Palpitations [None]
  - Disturbance in attention [None]
  - Malaise [None]
  - Nausea [None]

NARRATIVE: CASE EVENT DATE: 20170717
